FAERS Safety Report 8256869-6 (Version None)
Quarter: 2012Q2

REPORT INFORMATION
  Report Type: 
  Country: None (occurrence: None)
  Receive Date: 20120403
  Receipt Date: 20120326
  Transmission Date: 20120825
  Serious: Yes (Hospitalization)
  Sender: FDA-Public Use
  Company Number: US-AMGEN-USASP2012019405

PATIENT
  Age: 81 Year
  Sex: Female

DRUGS (20)
  1. DUONEB [Concomitant]
     Dosage: UNK
  2. VITAMIN D [Concomitant]
     Dosage: UNK
     Dates: start: 20110610
  3. ISOSORBIDE DINITRATE [Concomitant]
     Dosage: UNK
  4. LOVASTATIN [Concomitant]
     Dosage: UNK
  5. POTASSIUM CHLORIDE [Concomitant]
     Dosage: UNK
  6. ALBUTEROL [Concomitant]
     Dosage: UNK
  7. CYMBALTA [Concomitant]
     Dosage: UNK
  8. COLACE [Concomitant]
     Dosage: UNK
  9. CARDURA [Concomitant]
     Dosage: UNK
  10. ACETAMINOPHEN AND HYDROCODONE BITARTRATE [Concomitant]
     Dosage: UNK
  11. NIFEDIAC [Concomitant]
     Dosage: UNK
  12. PANTOPRAZOLE [Concomitant]
     Dosage: UNK
  13. CALCIUM CARBONATE [Concomitant]
     Dosage: UNK
     Dates: start: 20110610
  14. ALPHAGAN [Concomitant]
     Dosage: UNK
  15. HYDRALAZINE HCL [Concomitant]
     Dosage: UNK
  16. FISH OIL [Concomitant]
     Dosage: UNK
  17. ARANESP [Suspect]
     Indication: RENAL FAILURE CHRONIC
     Dosage: UNK
  18. PROLIA [Suspect]
     Indication: OSTEOPOROSIS POSTMENOPAUSAL
     Dosage: 60 MG, Q6MO
     Dates: start: 20110610, end: 20110101
  19. LIDODERM [Concomitant]
     Dosage: UNK
  20. FUROSEMIDE [Concomitant]
     Dosage: UNK

REACTIONS (3)
  - HYPERCALCAEMIA [None]
  - CREATININE RENAL CLEARANCE DECREASED [None]
  - BLOOD UREA INCREASED [None]
